FAERS Safety Report 14615196 (Version 5)
Quarter: 2020Q1

REPORT INFORMATION
  Report Type: Report from Study
  Country: US (occurrence: US)
  Receive Date: 20180308
  Receipt Date: 20200124
  Transmission Date: 20200409
  Serious: Yes (Hospitalization, Other)
  Sender: FDA-Public Use
  Company Number: US-ACTELION-A-NJ2018-168520

PATIENT
  Sex: Female
  Weight: 48.53 kg

DRUGS (4)
  1. BUMETANIDE. [Concomitant]
     Active Substance: BUMETANIDE
  2. OPSUMIT [Suspect]
     Active Substance: MACITENTAN
     Indication: PULMONARY ARTERIAL HYPERTENSION
     Dosage: 10 MG, QD
     Route: 048
     Dates: start: 20180129
  3. AMLODIPINE [Concomitant]
     Active Substance: AMLODIPINE BESYLATE
  4. FUROSEMIDE. [Concomitant]
     Active Substance: FUROSEMIDE

REACTIONS (8)
  - Nasopharyngitis [Unknown]
  - Localised infection [Unknown]
  - Laryngitis [Unknown]
  - Pharyngitis streptococcal [Unknown]
  - Nausea [Unknown]
  - Osteomyelitis [Unknown]
  - Pain [Unknown]
  - Dry eye [Unknown]
